FAERS Safety Report 6073402-8 (Version None)
Quarter: 2009Q1

REPORT INFORMATION
  Report Type: 
  Country: None (occurrence: None)
  Receive Date: 20090211
  Receipt Date: 20090129
  Transmission Date: 20090719
  Serious: Yes (Hospitalization)
  Sender: FDA-Public Use
  Company Number: US-BIOGENIDEC-2008BI029259

PATIENT
  Age: 46 Year
  Sex: Male

DRUGS (13)
  1. TYSABRI [Suspect]
     Indication: MULTIPLE SCLEROSIS
     Route: 042
     Dates: start: 20080708
  2. PROVIGIL [Concomitant]
     Indication: FATIGUE
     Route: 048
  3. NEURONTIN [Concomitant]
     Indication: MUSCLE SPASMS
     Route: 048
  4. MULTI-VITAMIN AND MINERAL ADVANCED [Concomitant]
  5. PROTONIX [Concomitant]
     Route: 048
  6. SKELAXIN [Concomitant]
     Indication: MUSCLE SPASMS
  7. ASTELIN [Concomitant]
  8. ALLEGRA D 24 HOUR [Concomitant]
  9. ALLEGRA D 24 HOUR [Concomitant]
  10. LOTREL [Concomitant]
     Route: 048
  11. LOTREL [Concomitant]
     Route: 048
  12. TOPROL-XL [Concomitant]
     Route: 048
  13. LIBRAX [Concomitant]
     Indication: DRUG USE FOR UNKNOWN INDICATION
     Route: 048
     Dates: end: 20080827

REACTIONS (11)
  - ASTHENIA [None]
  - DEPRESSION [None]
  - EAR INFECTION [None]
  - HYPERHIDROSIS [None]
  - INFLUENZA LIKE ILLNESS [None]
  - PALPITATIONS [None]
  - PARAESTHESIA [None]
  - SWELLING FACE [None]
  - SYNCOPE [None]
  - TINNITUS [None]
  - UPPER RESPIRATORY TRACT INFECTION [None]
